FAERS Safety Report 11202224 (Version 1)
Quarter: 2015Q2

REPORT INFORMATION
  Report Type: Spontaneous
  Country: BR (occurrence: BR)
  Receive Date: 20150619
  Receipt Date: 20150619
  Transmission Date: 20150821
  Serious: Yes (Hospitalization)
  Sender: FDA-Public Use
  Company Number: BR-ELI_LILLY_AND_COMPANY-BR201506003439

PATIENT
  Age: 45 Year
  Sex: Male
  Weight: 77 kg

DRUGS (4)
  1. CIALIS [Suspect]
     Active Substance: TADALAFIL
     Indication: ERECTILE DYSFUNCTION
     Dosage: 1 DF, QD
     Route: 048
     Dates: start: 201505
  2. ROSUVASTATINA                      /01588601/ [Concomitant]
     Indication: DYSLIPIDAEMIA
     Dosage: 20 MG, EACH EVENING
     Route: 065
  3. SOMALGIN [Concomitant]
     Active Substance: ASPIRIN\DIHYDROXYALUMINUM AMINOACETATE ANHYDROUS\MAGNESIUM CARBONATE
     Indication: BLOOD DISORDER
     Dosage: 100 MG, EACH MORNING
     Route: 065
  4. VALSARTANA [Concomitant]
     Indication: VASODILATATION
     Dosage: 80 MG, EACH MORNING
     Route: 065

REACTIONS (1)
  - Nephrolithiasis [Recovered/Resolved]

NARRATIVE: CASE EVENT DATE: 20150507
